FAERS Safety Report 8027922-7 (Version None)
Quarter: 2011Q4

REPORT INFORMATION
  Report Type: 
  Country: None (occurrence: None)
  Receive Date: 20111130
  Receipt Date: 20110707
  Transmission Date: 20120403
  Serious: Yes (Other)
  Sender: FDA-Public Use
  Company Number: US200903003349

PATIENT
  Weight: 81.6 kg

DRUGS (3)
  1. LANTUS [Concomitant]
  2. BYETTA [Suspect]
     Dates: start: 20060220
  3. EXENATIDE UNK STRENGTH PEN,DISPOSABLE DEVICE (EXENATIDE PEN (UNKNOWN S [Concomitant]

REACTIONS (7)
  - NEPHROPATHY [None]
  - PANCREATITIS [None]
  - EMOTIONAL DISTRESS [None]
  - INJURY [None]
  - DIABETIC NEUROPATHY [None]
  - BLOOD PRESSURE INCREASED [None]
  - OFF LABEL USE [None]
